FAERS Safety Report 7445210-4 (Version None)
Quarter: 2011Q2

REPORT INFORMATION
  Report Type: 
  Country: None (occurrence: None)
  Receive Date: 20110420
  Receipt Date: 20110405
  Transmission Date: 20111010
  Serious: Yes (Hospitalization)
  Sender: FDA-Public Use
  Company Number: 1000020053

PATIENT
  Age: 80 Year
  Sex: Male

DRUGS (8)
  1. TRIMETAZIDTN (TRIMETAZIDINE)(TABLETS)(TRIMETAZIDINE) [Concomitant]
  2. SINEMET(LEVODOPA, CARBIDOPA, ENTACAPONE)(TABLETS)(LEVODOPA, CARBIDOPA, [Concomitant]
  3. INDAPAMIDE (INDAPAMIDE)(TABLETS)(INDAPAMIDE) [Concomitant]
  4. AMANTADINE (AMANTADINE) (TABLETS) (AMANTADINE) [Concomitant]
  5. MEMANTINE [Suspect]
     Indication: DEMENTIA ALZHEIMER'S TYPE
     Dosage: 5 MG (5 MG, 1  IN 1 D),ORAL
     Route: 048
     Dates: start: 20091117, end: 20091126
  6. DONEPEZIL (DONEPEZIL) (TABLETS)(DONEPEZIL) [Concomitant]
  7. SIMVASTATIN (SIMVASTATIN) (TABLETS) (SIMVASTATIN) [Concomitant]
  8. TAMSULOS IN (TAMSULOSIN) (TABLETS) ( TAMSULOSIN) [Concomitant]

REACTIONS (4)
  - DISORIENTATION [None]
  - VOMITING [None]
  - BALANCE DISORDER [None]
  - NAUSEA [None]
